FAERS Safety Report 5568982-2 (Version None)
Quarter: 2007Q4

REPORT INFORMATION
  Report Type: 
  Country: None (occurrence: None)
  Receive Date: 20071220
  Receipt Date: 20070516
  Transmission Date: 20080405
  Serious: No
  Sender: FDA-Public Use
  Company Number: A0648052A

PATIENT
  Age: 88 Year
  Sex: Male

DRUGS (1)
  1. AVODART [Suspect]
     Dosage: .5MG PER DAY
     Route: 048
     Dates: start: 20070201

REACTIONS (3)
  - FATIGUE [None]
  - PROSTATIC SPECIFIC ANTIGEN DECREASED [None]
  - THERAPEUTIC RESPONSE UNEXPECTED [None]
